FAERS Safety Report 8152006-7 (Version None)
Quarter: 2012Q1

REPORT INFORMATION
  Report Type: 
  Country: None (occurrence: None)
  Receive Date: 20120221
  Receipt Date: 20120215
  Transmission Date: 20120608
  Serious: No
  Sender: FDA-Public Use
  Company Number: US-PFIZER INC-2010054578

PATIENT
  Sex: Male
  Weight: 113 kg

DRUGS (7)
  1. TIKOSYN [Suspect]
     Indication: ATRIAL FIBRILLATION
     Dosage: 375 UG, 2X/DAY
     Route: 048
     Dates: start: 20100401
  2. ACETYLSALICYLIC ACID [Concomitant]
     Indication: CARDIAC DISORDER
     Dosage: UNK
  3. CITALOPRAM HYDROBROMIDE [Concomitant]
     Indication: DEPRESSION
     Dosage: 40 MG, 1X/DAY
     Route: 048
  4. TIKOSYN [Suspect]
     Dosage: 125 UG, 3X/DAY
  5. DILTIAZEM [Concomitant]
     Indication: HYPERTENSION
     Dosage: 120 MG, 1X/DAY
     Dates: start: 20100101
  6. TIKOSYN [Suspect]
     Dosage: 125 UG, EVERY 4 HRS
     Route: 048
     Dates: start: 20100101
  7. VITAMIN D [Concomitant]
     Dosage: UNK

REACTIONS (5)
  - INSOMNIA [None]
  - HEART RATE INCREASED [None]
  - HYPERTENSION [None]
  - DRUG INEFFECTIVE [None]
  - HEART RATE IRREGULAR [None]
